FAERS Safety Report 11201781 (Version 1)
Quarter: 2015Q2

REPORT INFORMATION
  Report Type: Spontaneous
  Country: US (occurrence: None)
  Receive Date: 20150617
  Receipt Date: 20150617
  Transmission Date: 20150821
  Serious: No
  Sender: FDA-Public Use
  Company Number: None

PATIENT
  Age: 68 Year
  Sex: Male
  Weight: 114.7 kg

DRUGS (1)
  1. TERAZOSIN [Suspect]
     Active Substance: TERAZOSIN\TERAZOSIN HYDROCHLORIDE
     Dates: start: 20150505, end: 20150505

REACTIONS (2)
  - Hypotension [None]
  - Syncope [None]

NARRATIVE: CASE EVENT DATE: 20150505
